FAERS Safety Report 19477626 (Version 2)
Quarter: 2021Q3

REPORT INFORMATION
  Report Type: Spontaneous
  Country: FR (occurrence: FR)
  Receive Date: 20210630
  Receipt Date: 20210913
  Transmission Date: 20211014
  Serious: Yes (Other)
  Sender: FDA-Public Use
  Company Number: FR-PFIZER INC-2021769093

PATIENT
  Age: 50 Year
  Sex: Female
  Weight: 80 kg

DRUGS (4)
  1. BRAFTOVI [Suspect]
     Active Substance: ENCORAFENIB
     Indication: METASTATIC MALIGNANT MELANOMA
     Dosage: 450 MG, DAILY
     Route: 048
     Dates: start: 20210223, end: 20210318
  2. VENTOLINE [SALBUTAMOL SULFATE] [Concomitant]
     Active Substance: ALBUTEROL SULFATE
     Indication: ASTHMA
     Dosage: UNK
     Route: 065
  3. MEKTOVI [Suspect]
     Active Substance: BINIMETINIB
     Indication: METASTATIC MALIGNANT MELANOMA
     Dosage: 90 MG, DAILY
     Route: 048
     Dates: start: 20210223, end: 20210318
  4. SERETIDE [Concomitant]
     Active Substance: FLUTICASONE PROPIONATE\SALMETEROL XINAFOATE
     Indication: ASTHMA
     Dosage: UNK
     Route: 065

REACTIONS (2)
  - Palmoplantar keratoderma [Not Recovered/Not Resolved]
  - Retinal detachment [Not Recovered/Not Resolved]

NARRATIVE: CASE EVENT DATE: 20210311
